FAERS Safety Report 9013320 (Version 1)
Quarter: 2013Q1

REPORT INFORMATION
  Report Type: Spontaneous
  Country: US (occurrence: None)
  Receive Date: 20130107
  Receipt Date: 20130107
  Transmission Date: 20140127
  Serious: Yes (Disabling)
  Sender: FDA-Public Use
  Company Number: None

PATIENT
  Age: 39 Year
  Sex: Female
  Weight: 49.9 kg

DRUGS (1)
  1. TRIAMCINOLONE ACETONIDE [Suspect]
     Route: 030
     Dates: start: 20121115, end: 20121115

REACTIONS (6)
  - Hypersensitivity [None]
  - Injection site irritation [None]
  - Rash [None]
  - Skin discolouration [None]
  - Skin induration [None]
  - Skin atrophy [None]
